FAERS Safety Report 24940765 (Version 2)
Quarter: 2025Q2

REPORT INFORMATION
  Report Type: Report from Study
  Country: US (occurrence: US)
  Receive Date: 20250207
  Receipt Date: 20250404
  Transmission Date: 20250717
  Serious: Yes (Hospitalization, Other)
  Sender: ABBVIE
  Company Number: US-ABBVIE-6116552

PATIENT
  Sex: Female

DRUGS (1)
  1. RINVOQ [Suspect]
     Active Substance: UPADACITINIB
     Indication: Rheumatoid arthritis
     Route: 048
     Dates: start: 20240726

REACTIONS (6)
  - Sepsis [Unknown]
  - Infection [Recovering/Resolving]
  - Balance disorder [Unknown]
  - Coordination abnormal [Unknown]
  - Rheumatoid arthritis [Not Recovered/Not Resolved]
  - Urinary tract infection [Recovering/Resolving]
